FAERS Safety Report 6776321-4 (Version None)
Quarter: 2010Q2

REPORT INFORMATION
  Report Type: 
  Country: None (occurrence: None)
  Receive Date: 20100615
  Receipt Date: 20100531
  Transmission Date: 20101027
  Serious: Yes (Other)
  Sender: FDA-Public Use
  Company Number: 013276

PATIENT

DRUGS (1)
  1. LEVETIRACETAM [Suspect]
     Indication: EPILEPSY
     Dosage: 5MG/KG INITAL DOCE FOR TWO WEEKS, INCREASING DOSE FOR EVERY FORNIGHT BY 5MG/KG BID TO A MAXIUM DAILY

REACTIONS (1)
  - APNOEIC ATTACK [None]
